FAERS Safety Report 9408467 (Version 2)
Quarter: 2013Q3

REPORT INFORMATION
  Report Type: Spontaneous
  Country: US (occurrence: None)
  Receive Date: 20130716
  Receipt Date: 20130725
  Transmission Date: 20140515
  Serious: Yes (Hospitalization, Other)
  Sender: FDA-Public Use
  Company Number: AUR-APL-2013-05834

PATIENT
  Age: 44 Year
  Sex: Male

DRUGS (4)
  1. HYDROCODONE\PARACETAMOL [Suspect]
     Indication: BACK PAIN
  2. HYDROCODONE\PARACETAMOL [Suspect]
     Indication: ARTHRALGIA
  3. ARIPIPRAZOLE [Suspect]
     Indication: PSYCHOMOTOR HYPERACTIVITY
     Route: 030
  4. HALOPERIDOL [Suspect]
     Indication: PSYCHOMOTOR HYPERACTIVITY
     Route: 030

REACTIONS (24)
  - Drug withdrawal syndrome [None]
  - Delusion [None]
  - Hallucination [None]
  - Disorientation [None]
  - Disturbance in attention [None]
  - Nausea [None]
  - Vomiting [None]
  - Decreased appetite [None]
  - Psychomotor hyperactivity [None]
  - Tremor [None]
  - Dystonia [None]
  - Insomnia [None]
  - Pyrexia [None]
  - Tachycardia [None]
  - Blood pressure decreased [None]
  - Myoclonus [None]
  - Electrocardiogram QT prolonged [None]
  - Memory impairment [None]
  - Cognitive disorder [None]
  - Disturbance in attention [None]
  - Fatigue [None]
  - Hallucinations, mixed [None]
  - Normochromic normocytic anaemia [None]
  - Hypokalaemia [None]
